FAERS Safety Report 4319324-1 (Version None)
Quarter: 2004Q1

REPORT INFORMATION
  Report Type: 
  Country: None (occurrence: None)
  Receive Date: 20040316
  Receipt Date: 20040303
  Transmission Date: 20041129
  Serious: Yes (Other)
  Sender: FDA-Public Use
  Company Number: FR_040303692

PATIENT
  Age: 28 Year
  Sex: Female

DRUGS (1)
  1. PROZAC [Suspect]
     Indication: BULIMIA NERVOSA
     Dosage: 20 MG/3 DAY
     Dates: start: 20030101

REACTIONS (1)
  - MEDULLARY THYROID CANCER [None]
